FAERS Safety Report 11810673 (Version 1)
Quarter: 2015Q4

REPORT INFORMATION
  Report Type: Spontaneous
  Country: DE (occurrence: DE)
  Receive Date: 20151208
  Receipt Date: 20151208
  Transmission Date: 20160305
  Serious: Yes (Hospitalization, Other)
  Sender: FDA-Public Use
  Company Number: DE-ELI_LILLY_AND_COMPANY-DE201511008848

PATIENT
  Age: 63 Year
  Sex: Female

DRUGS (6)
  1. ORFIRIL [Suspect]
     Active Substance: VALPROIC ACID
     Dosage: 1200 MG, QD
     Route: 048
     Dates: start: 20150604, end: 20150612
  2. ZYPREXA [Suspect]
     Active Substance: OLANZAPINE
     Dosage: 10 MG, QD
     Route: 065
     Dates: start: 20150611
  3. ZYPREXA [Suspect]
     Active Substance: OLANZAPINE
     Indication: PRODUCT USED FOR UNKNOWN INDICATION
     Dosage: 10 MG, QD
     Route: 048
     Dates: start: 20150527, end: 20150528
  4. ORFIRIL [Suspect]
     Active Substance: VALPROIC ACID
     Dosage: 900 MG, QD
     Route: 048
     Dates: start: 20150603, end: 20150603
  5. ZYPREXA [Suspect]
     Active Substance: OLANZAPINE
     Dosage: 15 MG, QD
     Route: 048
     Dates: start: 20150529, end: 20150610
  6. ORFIRIL [Suspect]
     Active Substance: VALPROIC ACID
     Indication: PRODUCT USED FOR UNKNOWN INDICATION
     Dosage: 600 MG, QD
     Route: 048
     Dates: start: 20150529, end: 20150602

REACTIONS (5)
  - Fall [Unknown]
  - Myocardial haemorrhage [Unknown]
  - Hypertonia [Unknown]
  - Somnolence [Unknown]
  - Fall [Not Recovered/Not Resolved]

NARRATIVE: CASE EVENT DATE: 20150612
